FAERS Safety Report 5509646-0 (Version None)
Quarter: 2007Q4

REPORT INFORMATION
  Report Type: 
  Country: None (occurrence: None)
  Receive Date: 20071108
  Receipt Date: 20071031
  Transmission Date: 20080405
  Serious: Yes (Hospitalization, Disabling, Other)
  Sender: FDA-Public Use
  Company Number: PHHO2007AR18213

PATIENT
  Age: 50 Year
  Sex: Male

DRUGS (1)
  1. DIOVAN TRIPLE [Suspect]
     Indication: HYPERTENSION
     Dosage: UNK, QD
     Route: 048
     Dates: start: 20070301

REACTIONS (3)
  - SPORTS INJURY [None]
  - SURGERY [None]
  - TIBIA FRACTURE [None]
